FAERS Safety Report 9020996 (Version 1)
Quarter: 2013Q1

REPORT INFORMATION
  Report Type: Spontaneous
  Country: US (occurrence: US)
  Receive Date: 20130119
  Receipt Date: 20130119
  Transmission Date: 20140127
  Serious: No
  Sender: FDA-Public Use
  Company Number: US-ALLERGAN-1203481US

PATIENT
  Age: 62 Year
  Sex: Female

DRUGS (1)
  1. BOTOX? [Suspect]
     Indication: TEMPOROMANDIBULAR JOINT SYNDROME
     Dosage: 25 UNITS, SINGLE
     Route: 030
     Dates: start: 20120229, end: 20120229

REACTIONS (2)
  - Neck pain [Recovering/Resolving]
  - Muscle spasms [Recovering/Resolving]
